FAERS Safety Report 24293271 (Version 1)
Quarter: 2024Q3

REPORT INFORMATION
  Report Type: Spontaneous
  Country: US (occurrence: None)
  Receive Date: 20240906
  Receipt Date: 20240906
  Transmission Date: 20241017
  Serious: No
  Sender: DOMPE FARMACEUTICI
  Company Number: US-FARMAPROD-202308-202312-3654

PATIENT
  Sex: Male

DRUGS (29)
  1. OXERVATE [Suspect]
     Active Substance: CENEGERMIN-BKBJ
     Indication: Neurotrophic keratopathy
     Route: 047
     Dates: start: 20231114
  2. UNSPECIFIED INGREDIENT [Concomitant]
     Active Substance: UNSPECIFIED INGREDIENT
  3. RESTASIS [Concomitant]
     Active Substance: CYCLOSPORINE
  4. THIAMINE HYDROCHLORIDE [Concomitant]
     Active Substance: THIAMINE HYDROCHLORIDE
  5. NUCYNTA [Concomitant]
     Active Substance: TAPENTADOL HYDROCHLORIDE
     Dosage: 12 HOURS.
  6. TOPIRAMATE [Concomitant]
     Active Substance: TOPIRAMATE
  7. OXYCODONE HYDROCHLORIDE [Concomitant]
     Active Substance: OXYCODONE HYDROCHLORIDE
  8. DICLOFENAC SODIUM [Concomitant]
     Active Substance: DICLOFENAC\DICLOFENAC SODIUM
  9. LIDOCAINE [Concomitant]
     Active Substance: LIDOCAINE
  10. ALPHA LIPOIC ACID [Concomitant]
     Active Substance: .ALPHA.-LIPOIC ACID
  11. CRANBERRY [Concomitant]
     Active Substance: CRANBERRY
  12. CLOBETASOL PROPIONATE [Concomitant]
     Active Substance: CLOBETASOL PROPIONATE
  13. ONDANSETRON HYDROCHLORIDE [Concomitant]
     Active Substance: ONDANSETRON HYDROCHLORIDE
  14. VEREGEN [Concomitant]
     Active Substance: SINECATECHINS
  15. OZEMPIC [Concomitant]
     Active Substance: SEMAGLUTIDE
     Dosage: 1/0.75 (3) PEN INJECTOR.
  16. HUMULIN N [Concomitant]
     Active Substance: INSULIN HUMAN
  17. BUPROPION HYDROCHLORIDE [Concomitant]
     Active Substance: BUPROPION HYDROCHLORIDE
     Dosage: FOR 12 HOURS.
  18. DULOXETINE HYDROCHLORIDE [Concomitant]
     Active Substance: DULOXETINE HYDROCHLORIDE
  19. METOPROLOL SUCCINATE [Concomitant]
     Active Substance: METOPROLOL SUCCINATE
  20. ELIQUIS [Concomitant]
     Active Substance: APIXABAN
  21. LEVOTHYROXINE SODIUM [Concomitant]
     Active Substance: LEVOTHYROXINE SODIUM
  22. ROSUVASTATIN CALCIUM [Concomitant]
     Active Substance: ROSUVASTATIN CALCIUM
  23. TORSEMIDE [Concomitant]
     Active Substance: TORSEMIDE
  24. NITROGLYCERIN [Concomitant]
     Active Substance: NITROGLYCERIN
  25. MONTELUKAST SODIUM [Concomitant]
     Active Substance: MONTELUKAST\MONTELUKAST SODIUM
  26. VITAMIN B COMPLEX [Concomitant]
     Active Substance: CYANOCOBALAMIN\DEXPANTHENOL\NIACINAMIDE\PYRIDOXINE HYDROCHLORIDE\RIBOFLAVIN 5^-PHOSPHATE SODIUM\THIA
  27. VITAMIN D3 [Concomitant]
     Active Substance: CHOLECALCIFEROL
  28. OMEPRAZOLE [Concomitant]
     Active Substance: OMEPRAZOLE
  29. ALLOPURINOL [Concomitant]
     Active Substance: ALLOPURINOL

REACTIONS (2)
  - Therapy interrupted [Unknown]
  - Intentional product misuse [Unknown]
